FAERS Safety Report 9499178 (Version 1)
Quarter: 2013Q3

REPORT INFORMATION
  Report Type: Spontaneous
  Country: US (occurrence: US)
  Receive Date: 20130905
  Receipt Date: 20130905
  Transmission Date: 20140515
  Serious: No
  Sender: FDA-Public Use
  Company Number: US-B.I. PHARMACEUTICALS,INC./RIDGEFIELD-2013-BI-26272BP

PATIENT
  Age: 64 Year
  Sex: Male
  Weight: 75 kg

DRUGS (6)
  1. COMBIVENT [Suspect]
     Indication: CHRONIC OBSTRUCTIVE PULMONARY DISEASE
     Dosage: STRENGTH: 20 MCG / 100 MCG; DAILY DOSE: 80 MCG/ 400 MCG
     Route: 055
     Dates: start: 201306
  2. ADVAIR [Concomitant]
     Indication: CHRONIC OBSTRUCTIVE PULMONARY DISEASE
     Dosage: STRENGTH: 250/50 MG; DAILY DOSE: 500/ 100 MG
     Route: 055
  3. EXCEDRIN [Concomitant]
     Indication: BACK PAIN
     Route: 048
  4. PROAIR HFR [Concomitant]
     Indication: CHRONIC OBSTRUCTIVE PULMONARY DISEASE
     Route: 055
  5. LUMIGAN EYE DROPS [Concomitant]
     Indication: GLAUCOMA
  6. ALPHAGAN P EYE DROPS [Concomitant]
     Indication: GLAUCOMA

REACTIONS (2)
  - Drug ineffective [Not Recovered/Not Resolved]
  - Eye infection [Not Recovered/Not Resolved]
